FAERS Safety Report 23094605 (Version 1)
Quarter: 2023Q4

REPORT INFORMATION
  Report Type: Spontaneous
  Country: IE (occurrence: IE)
  Receive Date: 20231023
  Receipt Date: 20231023
  Transmission Date: 20240109
  Serious: Yes (Life-Threatening, Other)
  Sender: FDA-Public Use
  Company Number: None

PATIENT
  Age: 46 Year
  Sex: Male

DRUGS (3)
  1. LYRICA [Suspect]
     Active Substance: PREGABALIN
     Indication: Euphoric mood
     Dosage: AS MANY AS THE PATIENT CAN GET - UP TO 1 GM DAILY
     Route: 048
     Dates: start: 2023
  2. METHADONE [Suspect]
     Active Substance: METHADONE HYDROCHLORIDE
     Indication: Product used for unknown indication
     Dosage: 30 MILLILITER
     Route: 048
     Dates: start: 2023
  3. DIAZEPAM [Suspect]
     Active Substance: DIAZEPAM
     Indication: Product used for unknown indication
     Dosage: 40 MILLIGRAM
     Route: 048
     Dates: start: 202309

REACTIONS (6)
  - Altered state of consciousness [Unknown]
  - Disease risk factor [Unknown]
  - Prescription drug used without a prescription [Unknown]
  - Euphoric mood [Unknown]
  - Drug abuse [Unknown]
  - Drug dependence [Unknown]

NARRATIVE: CASE EVENT DATE: 20230101
